FAERS Safety Report 6672078-6 (Version None)
Quarter: 2010Q2

REPORT INFORMATION
  Report Type: 
  Country: None (occurrence: None)
  Receive Date: 20100407
  Receipt Date: 20100407
  Transmission Date: 20101027
  Serious: No
  Sender: FDA-Public Use
  Company Number: None

PATIENT
  Sex: Female

DRUGS (2)
  1. SIMVASTATIN [Suspect]
     Indication: HYPERLIPIDAEMIA
  2. METOPROLOL TARTRATE [Suspect]
     Indication: VENTRICULAR EXTRASYSTOLES

REACTIONS (2)
  - DRUG INEFFECTIVE [None]
  - GASTRIC DISORDER [None]
